FAERS Safety Report 8224146-5 (Version None)
Quarter: 2012Q1

REPORT INFORMATION
  Report Type: 
  Country: None (occurrence: None)
  Receive Date: 20120321
  Receipt Date: 20120315
  Transmission Date: 20120608
  Serious: No
  Sender: FDA-Public Use
  Company Number: US-BAYER-2012-026007

PATIENT
  Sex: Female

DRUGS (1)
  1. MENOSTAR [Suspect]

REACTIONS (1)
  - HEADACHE [None]
